FAERS Safety Report 5402774-X (Version None)
Quarter: 2007Q3

REPORT INFORMATION
  Report Type: 
  Country: None (occurrence: None)
  Receive Date: 20070730
  Receipt Date: 20070718
  Transmission Date: 20080115
  Serious: Yes (Hospitalization)
  Sender: FDA-Public Use
  Company Number: 016310

PATIENT
  Age: 34 Year
  Sex: Male

DRUGS (3)
  1. ANTABUSE [Suspect]
     Indication: ALCOHOLISM
     Dosage: 500 MG/DAY, ORAL, 1500 MG/DAY; ORAL
     Route: 048
  2. ANTABUSE [Suspect]
     Indication: ALCOHOLISM
     Dosage: 500 MG/DAY, ORAL, 1500 MG/DAY; ORAL
     Route: 048
  3. ALCOHOL (ETHANOL) [Suspect]
     Dosage: 3 UNITS,

REACTIONS (13)
  - ALCOHOL INTOLERANCE [None]
  - DELUSION [None]
  - DISTURBANCE IN ATTENTION [None]
  - DYSPNOEA [None]
  - FLUSHING [None]
  - HALLUCINATION, AUDITORY [None]
  - HEADACHE [None]
  - INSOMNIA [None]
  - LOGORRHOEA [None]
  - MANIA [None]
  - PRESSURE OF SPEECH [None]
  - PSYCHOMOTOR HYPERACTIVITY [None]
  - PSYCHOTIC DISORDER [None]
